FAERS Safety Report 23075809 (Version 1)
Quarter: 2023Q4

REPORT INFORMATION
  Report Type: Report from Study
  Country: US (occurrence: US)
  Receive Date: 20231017
  Receipt Date: 20231017
  Transmission Date: 20240110
  Serious: Yes (Death)
  Sender: FDA-Public Use
  Company Number: US-ABBVIE-5453086

PATIENT
  Age: 86 Year
  Sex: Male

DRUGS (1)
  1. VENCLEXTA [Suspect]
     Active Substance: VENETOCLAX
     Indication: Chronic lymphocytic leukaemia
     Dosage: TAKE 400MG BY MOUTH DAILY WITH BREAKFAST
     Route: 048
     Dates: start: 20221007, end: 20221106

REACTIONS (1)
  - Death [Fatal]

NARRATIVE: CASE EVENT DATE: 20230904
